FAERS Safety Report 8899046 (Version 1)
Quarter: 2012Q4

REPORT INFORMATION
  Report Type: 
  Country: US (occurrence: US)
  Receive Date: 20121108
  Receipt Date: 20121108
  Transmission Date: 20130627
  Serious: No
  Sender: FDA-Public Use
  Company Number: US-AMGEN-USASP2012034430

PATIENT
  Age: 42 Year
  Sex: Male

DRUGS (8)
  1. ENBREL [Suspect]
     Indication: PRODUCT USED FOR UNKNOWN INDICATION
     Dosage: 50 mg, qwk
     Route: 058
  2. PREDNISONE [Concomitant]
     Dosage: 5 mg, UNK
  3. PRILOSEC                           /00661201/ [Concomitant]
     Dosage: 20 mg, UNK
  4. IBUPROFEN [Concomitant]
     Dosage: 200 mg, UNK
  5. CALCIUM [Concomitant]
     Dosage: 600 UNK, UNK
  6. FOLIC ACID [Concomitant]
     Dosage: 800 mug, UNK
  7. MULTIVITAMINS [Concomitant]
     Dosage: UNK
  8. METHOTREXATE [Concomitant]
     Dosage: 1 g, UNK

REACTIONS (2)
  - Therapeutic response decreased [Unknown]
  - Injection site pain [Unknown]
